FAERS Safety Report 12104035 (Version 5)
Quarter: 2016Q1

REPORT INFORMATION
  Report Type: Report from Study
  Country: JP (occurrence: JP)
  Receive Date: 20160223
  Receipt Date: 20160331
  Transmission Date: 20160526
  Serious: Yes (Life-Threatening)
  Sender: FDA-Public Use
  Company Number: JP-ROCHE-1696178

PATIENT
  Age: 76 Year
  Sex: Male
  Weight: 51.9 kg

DRUGS (45)
  1. ATEZOLIZUMAB [Suspect]
     Active Substance: ATEZOLIZUMAB
     Indication: RENAL CELL CARCINOMA
     Dosage: MOST RECENT DOSE ON 24/DEC/2015
     Route: 042
     Dates: start: 20151111
  2. BROTIZOLAM [Concomitant]
     Active Substance: BROTIZOLAM
     Indication: INSOMNIA
     Route: 048
     Dates: start: 20151031, end: 20160116
  3. MAGNESIUM OXIDE. [Concomitant]
     Active Substance: MAGNESIUM OXIDE
     Indication: CONSTIPATION
     Route: 048
     Dates: end: 20160116
  4. CANDESARTAN CILEXETIL. [Concomitant]
     Active Substance: CANDESARTAN CILEXETIL
     Indication: HYPERTENSION
     Route: 048
     Dates: start: 20160121
  5. INSULIN HUMAN [Concomitant]
     Active Substance: INSULIN HUMAN
     Indication: DIABETES MELLITUS
     Dosage: 8 UNITS
     Route: 058
     Dates: start: 20160127, end: 20160129
  6. CLOPERASTINE HYDROCHLORIDE [Concomitant]
     Active Substance: CLOPERASTINE HYDROCHLORIDE
     Indication: TRACHEITIS OBSTRUCTIVE
     Route: 048
     Dates: start: 20151104, end: 20160116
  7. AMLODIPINE BESILATE [Concomitant]
     Active Substance: AMLODIPINE BESYLATE
     Indication: HYPERTENSION
     Route: 048
     Dates: start: 20160121
  8. CROTAMITON [Concomitant]
     Active Substance: CROTAMITON
     Indication: PRURITUS
     Route: 061
     Dates: start: 20151213
  9. CODEINE PHOSPHATE [Concomitant]
     Active Substance: CODEINE PHOSPHATE
     Indication: TRACHEITIS OBSTRUCTIVE
     Route: 048
     Dates: start: 20151221, end: 20160116
  10. HEPARIN SODIUM. [Concomitant]
     Active Substance: HEPARIN SODIUM
     Dosage: 10 UNITS
     Route: 050
     Dates: start: 20160115
  11. MONOAMMONIUM GLYCYRRHIZINATE [Concomitant]
     Indication: GAMMA-GLUTAMYLTRANSFERASE INCREASED
     Route: 042
     Dates: start: 20160117, end: 20160117
  12. MONOAMMONIUM GLYCYRRHIZINATE [Concomitant]
     Route: 042
     Dates: start: 20160120, end: 20160125
  13. INSULIN HUMAN [Concomitant]
     Active Substance: INSULIN HUMAN
     Indication: DIABETES MELLITUS
     Dosage: 8 UNITS
     Route: 058
     Dates: start: 20160123, end: 20160123
  14. AMLODIPINE BESILATE [Concomitant]
     Active Substance: AMLODIPINE BESYLATE
     Indication: HYPERTENSION
     Route: 048
     Dates: start: 20151130, end: 20160116
  15. URSODEOXYCHOLIC ACID [Concomitant]
     Active Substance: URSODIOL
     Indication: BLOOD ALKALINE PHOSPHATASE INCREASED
     Route: 048
     Dates: start: 20160113, end: 20160116
  16. MONOAMMONIUM GLYCYRRHIZINATE [Concomitant]
     Route: 042
     Dates: start: 20160126, end: 20160126
  17. MIRTAZAPINE. [Concomitant]
     Active Substance: MIRTAZAPINE
     Indication: DELIRIUM
     Route: 048
     Dates: start: 20160120, end: 20160207
  18. POTASSIUM CHLORIDE. [Concomitant]
     Active Substance: POTASSIUM CHLORIDE
     Indication: HYPOKALAEMIA
     Route: 048
     Dates: start: 20160121, end: 20160127
  19. INSULIN HUMAN [Concomitant]
     Active Substance: INSULIN HUMAN
     Indication: DIABETES MELLITUS
     Dosage: 4 UNITS
     Route: 058
     Dates: start: 20160122, end: 20160122
  20. INSULIN HUMAN [Concomitant]
     Active Substance: INSULIN HUMAN
     Indication: DIABETES MELLITUS
     Dosage: 16 UNITS
     Route: 058
     Dates: start: 20160126, end: 20160126
  21. INSULIN HUMAN [Concomitant]
     Active Substance: INSULIN HUMAN
     Indication: DIABETES MELLITUS
     Dosage: 4 UNITS
     Route: 058
     Dates: start: 20160202, end: 20160203
  22. POTASSIUM L-ASPARTATE [Concomitant]
     Active Substance: POTASSIUM ASPARTATE ANHYDROUS
     Indication: HYPOKALAEMIA
     Route: 042
     Dates: start: 20160121, end: 20160121
  23. INSULIN HUMAN [Concomitant]
     Active Substance: INSULIN HUMAN
     Indication: DIABETES MELLITUS
     Dosage: 6 UNIT
     Route: 058
     Dates: start: 20160120, end: 20160120
  24. INSULIN HUMAN [Concomitant]
     Active Substance: INSULIN HUMAN
     Indication: DIABETES MELLITUS
     Dosage: 4 UNITS
     Route: 058
     Dates: start: 20160121, end: 20160121
  25. INSULIN HUMAN [Concomitant]
     Active Substance: INSULIN HUMAN
     Indication: DIABETES MELLITUS
     Dosage: 8 UNITS
     Route: 058
     Dates: start: 20160130, end: 20160130
  26. PROCATEROL HYDROCHLORIDE [Concomitant]
     Active Substance: PROCATEROL HYDROCHLORIDE
     Indication: TRACHEITIS OBSTRUCTIVE
     Dosage: DOSE: 2 INHALATION
     Route: 055
     Dates: end: 20151230
  27. HEPARINOID [Concomitant]
     Active Substance: CHONDROITIN SULFATE (BOVINE)
     Indication: PALMAR-PLANTAR ERYTHRODYSAESTHESIA SYNDROME
     Route: 061
     Dates: start: 20151112
  28. MAGNESIUM OXIDE. [Concomitant]
     Active Substance: MAGNESIUM OXIDE
     Route: 048
     Dates: start: 20160130
  29. GLYCYRON [Concomitant]
     Active Substance: AMMONIUM GLYCYRRHIZATE\GLYCINE\METHIONINE
     Indication: GAMMA-GLUTAMYLTRANSFERASE INCREASED
     Dosage: 6 TABLETS
     Route: 048
     Dates: start: 20160113, end: 20160118
  30. GLYCYRON [Concomitant]
     Active Substance: AMMONIUM GLYCYRRHIZATE\GLYCINE\METHIONINE
     Indication: BLOOD ALKALINE PHOSPHATASE INCREASED
     Dosage: 6 TABLETS
     Route: 048
     Dates: start: 20160127, end: 20160203
  31. VEEN 3G [Concomitant]
     Indication: FLUID REPLACEMENT
     Route: 042
     Dates: start: 20160116, end: 20160116
  32. LANSOPRAZOLE. [Concomitant]
     Active Substance: LANSOPRAZOLE
     Dosage: INDICATION- PROPHYLAXIS FOR GASTRIC ULCER
     Route: 048
     Dates: start: 20160121, end: 20160203
  33. INSULIN HUMAN [Concomitant]
     Active Substance: INSULIN HUMAN
     Indication: DIABETES MELLITUS
     Dosage: 6 UNITS
     Route: 058
     Dates: start: 20160124, end: 20160125
  34. INSULIN HUMAN [Concomitant]
     Active Substance: INSULIN HUMAN
     Indication: DIABETES MELLITUS
     Dosage: 8 UNITS
     Route: 058
     Dates: start: 20160131, end: 20160201
  35. INSULIN HUMAN [Concomitant]
     Active Substance: INSULIN HUMAN
     Dosage: 6 UNITS
     Route: 058
     Dates: start: 20160124, end: 20160124
  36. INSULIN HUMAN [Concomitant]
     Active Substance: INSULIN HUMAN
     Dosage: 10 UNITS
     Route: 058
     Dates: start: 20160124, end: 20160124
  37. INSULIN HUMAN [Concomitant]
     Active Substance: INSULIN HUMAN
     Dosage: 10 UNITS
     Route: 058
     Dates: start: 20160122, end: 20160122
  38. BEVACIZUMAB [Suspect]
     Active Substance: BEVACIZUMAB
     Indication: RENAL CELL CARCINOMA
     Dosage: MOST RECENT DOSE ON 24/DEC/2015
     Route: 042
     Dates: start: 20151111
  39. FLURBIPROFEN. [Concomitant]
     Active Substance: FLURBIPROFEN
     Indication: BACK PAIN
     Route: 062
     Dates: start: 20151102
  40. ETIZOLAM [Concomitant]
     Active Substance: ETIZOLAM
     Indication: INSOMNIA
     Route: 048
     Dates: end: 20160116
  41. CANDESARTAN CILEXETIL. [Concomitant]
     Active Substance: CANDESARTAN CILEXETIL
     Indication: HYPERTENSION
     Route: 048
     Dates: start: 20151126, end: 20160116
  42. URSODEOXYCHOLIC ACID [Concomitant]
     Active Substance: URSODIOL
     Indication: GAMMA-GLUTAMYLTRANSFERASE INCREASED
     Route: 048
     Dates: start: 20151228, end: 20160113
  43. URSODEOXYCHOLIC ACID [Concomitant]
     Active Substance: URSODIOL
     Route: 048
     Dates: start: 20160127, end: 20160301
  44. HEPARIN SODIUM. [Concomitant]
     Active Substance: HEPARIN SODIUM
     Indication: THROMBOSIS IN DEVICE
     Dosage: DOSE 100 UNIT
     Route: 050
     Dates: start: 20160115, end: 20160124
  45. MONOAMMONIUM GLYCYRRHIZINATE [Concomitant]
     Indication: BLOOD ALKALINE PHOSPHATASE INCREASED
     Route: 042
     Dates: start: 20160118, end: 20160119

REACTIONS (2)
  - Systemic immune activation [Recovered/Resolved]
  - Pneumonia [Recovered/Resolved]

NARRATIVE: CASE EVENT DATE: 20160113
